FAERS Safety Report 20868841 (Version 1)
Quarter: 2022Q2

REPORT INFORMATION
  Report Type: Spontaneous
  Country: US (occurrence: US)
  Receive Date: 20220524
  Receipt Date: 20220524
  Transmission Date: 20220720
  Serious: No
  Sender: FDA-Public Use
  Company Number: US-PFIZER INC-202200684389

PATIENT
  Age: 69 Year
  Sex: Female

DRUGS (4)
  1. ZOLOFT [Suspect]
     Active Substance: SERTRALINE HYDROCHLORIDE
     Indication: Depression
     Dosage: 50 MG
  2. MELOXICAM [Suspect]
     Active Substance: MELOXICAM
     Indication: Inflammation
     Dosage: 15 MG
  3. BIOTIN [Concomitant]
     Active Substance: BIOTIN
     Dosage: UNK
  4. PROBIOTICS NOS [Concomitant]
     Active Substance: PROBIOTICS NOS
     Dosage: UNK

REACTIONS (6)
  - Insomnia [Unknown]
  - Nervousness [Unknown]
  - Dizziness [Unknown]
  - Feeling abnormal [Unknown]
  - Inappropriate affect [Unknown]
  - Fear [Unknown]
